FAERS Safety Report 14790020 (Version 2)
Quarter: 2018Q2

REPORT INFORMATION
  Report Type: Spontaneous
  Country: CN (occurrence: CN)
  Receive Date: 20180423
  Receipt Date: 20180423
  Transmission Date: 20180711
  Serious: Yes (Hospitalization, Other)
  Sender: FDA-Public Use
  Company Number: PHHY2018CN062663

PATIENT
  Age: 52 Year
  Sex: Male

DRUGS (6)
  1. PREDNISOLONE. [Suspect]
     Active Substance: PREDNISOLONE
     Indication: PAIN IN EXTREMITY
  2. NORMAL SALINE [Suspect]
     Active Substance: SODIUM CHLORIDE
     Indication: PAIN IN EXTREMITY
  3. LIDOCAINE HYDROCHLORIDE. [Suspect]
     Active Substance: LIDOCAINE HYDROCHLORIDE
     Indication: BACK PAIN
     Dosage: 35 MG, UNK
     Route: 008
     Dates: start: 20160906
  4. PREDNISOLONE. [Suspect]
     Active Substance: PREDNISOLONE
     Indication: BACK PAIN
     Dosage: 100 MG, UNK
     Route: 008
     Dates: start: 20160906
  5. NORMAL SALINE [Suspect]
     Active Substance: SODIUM CHLORIDE
     Indication: BACK PAIN
     Dosage: 30 ML, UNK
     Route: 008
     Dates: start: 20160906
  6. LIDOCAINE HYDROCHLORIDE. [Suspect]
     Active Substance: LIDOCAINE HYDROCHLORIDE
     Indication: PAIN IN EXTREMITY

REACTIONS (12)
  - Hypoaesthesia [Recovering/Resolving]
  - Spinal cord infarction [Unknown]
  - Decreased appetite [Unknown]
  - Myelitis [Unknown]
  - Pain in extremity [Recovered/Resolved]
  - Abdominal distension [Unknown]
  - Abdominal pain [Recovered/Resolved]
  - Sensory loss [Recovering/Resolving]
  - Movement disorder [Unknown]
  - Urinary retention [Unknown]
  - Product use in unapproved indication [Unknown]
  - Tethered cord syndrome [Unknown]

NARRATIVE: CASE EVENT DATE: 20160906
